FAERS Safety Report 9615270 (Version 2)
Quarter: 2013Q4

REPORT INFORMATION
  Report Type: Spontaneous
  Country: US (occurrence: US)
  Receive Date: 20131011
  Receipt Date: 20131011
  Transmission Date: 20140711
  Serious: No
  Sender: FDA-Public Use
  Company Number: US-PURDUE-USA-2013-0097394

PATIENT
  Age: 28 Year
  Sex: Female

DRUGS (1)
  1. BUTRANS [Suspect]
     Indication: PAIN
     Dosage: 20 MCG (TWO 10MCG PATCHES AT ONCE), 1/WEEK
     Route: 062

REACTIONS (3)
  - Application site scar [Not Recovered/Not Resolved]
  - Application site erythema [Unknown]
  - Application site rash [Not Recovered/Not Resolved]
